FAERS Safety Report 8469481-0 (Version None)
Quarter: 2012Q2

REPORT INFORMATION
  Report Type: 
  Country: None (occurrence: None)
  Receive Date: 20120626
  Receipt Date: 20120614
  Transmission Date: 20120825
  Serious: Yes (Hospitalization)
  Sender: FDA-Public Use
  Company Number: US-ACTELION-A-NJ2012-66792

PATIENT

DRUGS (14)
  1. DILTIAZEM [Concomitant]
  2. OXYGEN [Concomitant]
  3. TYLENOL PM, EXTRA STRENGTH [Concomitant]
  4. LASIX [Concomitant]
  5. NEURONTIN [Concomitant]
  6. TRACLEER [Suspect]
     Indication: PULMONARY ARTERIAL HYPERTENSION
     Dosage: 62.5 MG, BID
     Route: 048
     Dates: start: 20100401
  7. POTASSIUM ACETATE [Concomitant]
  8. DITROPAN XL [Concomitant]
  9. VENTAVIS [Concomitant]
     Indication: PULMONARY ARTERIAL HYPERTENSION
     Dosage: UNK
     Route: 055
     Dates: start: 20110621
  10. LIPITOR [Concomitant]
  11. PREVACID [Concomitant]
  12. NITROGLYCERIN [Concomitant]
  13. ALBUTEROL SULFATE [Concomitant]
  14. COUMADIN [Concomitant]

REACTIONS (3)
  - PRESYNCOPE [None]
  - CARDIAC PACEMAKER INSERTION [None]
  - SICK SINUS SYNDROME [None]
